FAERS Safety Report 23638800 (Version 8)
Quarter: 2025Q4

REPORT INFORMATION
  Report Type: Spontaneous
  Country: IN (occurrence: IN)
  Receive Date: 20240315
  Receipt Date: 20251014
  Transmission Date: 20260118
  Serious: Yes (Other)
  Sender: PFIZER
  Company Number: IN-PFIZER INC-PV202300106530

PATIENT
  Age: 59 Year
  Sex: Female

DRUGS (6)
  1. DACOMITINIB [Suspect]
     Active Substance: DACOMITINIB
     Indication: Non-small cell lung cancer metastatic
     Dosage: 30 MG, 1X/DAY
     Route: 048
     Dates: start: 20230614
  2. DACOMITINIB [Suspect]
     Active Substance: DACOMITINIB
     Dosage: UNK
     Dates: start: 20231103
  3. DACOMITINIB [Suspect]
     Active Substance: DACOMITINIB
     Dosage: 30 MG, 1X/DAY (1 HR BEFORE FOOD OR 2 HR AFTER FOOD) X 3 MONTHS (WITH PAP)
     Route: 048
  4. RANITIDINE HYDROCHLORIDE [Concomitant]
     Active Substance: RANITIDINE HYDROCHLORIDE
     Indication: Dyspepsia
     Dosage: 150 MG (BBF- BEFORE BREAKFAST AND FOOD)
  5. DIGENE [ALUMINIUM HYDROXIDE GEL, DRIED;DIMETICONE;MAGNESIUM ALUMINUM S [Concomitant]
     Dosage: 5 ML, DAILY
  6. DOXYCYCLINE [Concomitant]
     Active Substance: DOXYCYCLINE
     Dosage: 100 MG, AS NEEDED (TWICE DAILY X SOS)

REACTIONS (10)
  - Skin disorder [Recovered/Resolved]
  - Nail disorder [Recovered/Resolved]
  - Blood pressure increased [Unknown]
  - Rash [Recovered/Resolved]
  - Encephalomalacia [Unknown]
  - Neuropathic muscular atrophy [Unknown]
  - Cerebral small vessel ischaemic disease [Unknown]
  - Aspartate aminotransferase increased [Unknown]
  - Alanine aminotransferase increased [Unknown]
  - Gliosis [Unknown]

NARRATIVE: CASE EVENT DATE: 20231006
